FAERS Safety Report 8571342-3 (Version None)
Quarter: 2012Q3

REPORT INFORMATION
  Report Type: 
  Country: None (occurrence: None)
  Receive Date: 20120806
  Receipt Date: 20120730
  Transmission Date: 20120928
  Serious: Yes (Hospitalization)
  Sender: FDA-Public Use
  Company Number: FR-009507513-1208FRA001028

PATIENT

DRUGS (4)
  1. NASONEX [Concomitant]
  2. SYMBICORT [Concomitant]
     Route: 045
  3. ZADITEN [Concomitant]
  4. SINGULAIR [Suspect]
     Dosage: 10 MG, QD
     Route: 048
     Dates: start: 20120601, end: 20120629

REACTIONS (1)
  - VASCULITIS [None]
